FAERS Safety Report 4284857-3 (Version None)
Quarter: 2004Q1

REPORT INFORMATION
  Report Type: 
  Country: None (occurrence: None)
  Receive Date: 20040203
  Receipt Date: 20040203
  Transmission Date: 20041129
  Serious: Yes (Other)
  Sender: FDA-Public Use
  Company Number: None

PATIENT
  Age: 71 Year
  Sex: Female
  Weight: 65.7716 kg

DRUGS (2)
  1. AMBIEN [Suspect]
     Indication: SLEEP DISORDER
     Dosage: 10 MG NIGHTLY
     Dates: start: 20010101, end: 20030101
  2. AMBIEN [Suspect]
     Dosage: 5 MG NIGHTLY

REACTIONS (1)
  - BACK PAIN [None]
